FAERS Safety Report 4692872-0 (Version None)
Quarter: 2005Q2

REPORT INFORMATION
  Report Type: 
  Country: None (occurrence: None)
  Receive Date: 20050617
  Receipt Date: 20050609
  Transmission Date: 20051028
  Serious: Yes (Hospitalization)
  Sender: FDA-Public Use
  Company Number: FR-BRISTOL-MYERS SQUIBB COMPANY-13000021

PATIENT
  Age: 13 Year
  Sex: Male

DRUGS (5)
  1. SUSTIVA [Suspect]
     Indication: HIV INFECTION
     Route: 048
     Dates: start: 20050225, end: 20050305
  2. ZIAGEN [Suspect]
     Indication: HIV INFECTION
     Dates: start: 20050225, end: 20050305
  3. BACTRIM [Suspect]
     Indication: HIV INFECTION
     Dates: start: 20050225, end: 20050305
  4. NORVIR [Concomitant]
     Indication: HIV INFECTION
     Dates: start: 20050225
  5. TELZIR [Concomitant]
     Indication: HIV INFECTION
     Dates: start: 20050225

REACTIONS (6)
  - ALANINE AMINOTRANSFERASE INCREASED [None]
  - APHTHOUS STOMATITIS [None]
  - ASPARTATE AMINOTRANSFERASE INCREASED [None]
  - EOSINOPHILIA [None]
  - PYREXIA [None]
  - RASH PRURITIC [None]
